FAERS Safety Report 8523950-3 (Version None)
Quarter: 2012Q3

REPORT INFORMATION
  Report Type: 
  Country: None (occurrence: None)
  Receive Date: 20120719
  Receipt Date: 20120515
  Transmission Date: 20120928
  Serious: No
  Sender: FDA-Public Use
  Company Number: DL2012-0391

PATIENT
  Age: 25 Year
  Sex: Female

DRUGS (2)
  1. DOXYCYCLINE [Concomitant]
  2. MIFEPRISTONE (MIFEPREX) [Suspect]
     Indication: ABORTION INDUCED
     Dosage: 200 MG, ORAL
     Route: 048
     Dates: start: 20111219

REACTIONS (4)
  - MUSCLE SPASMS [None]
  - HAEMORRHAGE [None]
  - ABORTION INCOMPLETE [None]
  - PAIN [None]
